FAERS Safety Report 8003707-2 (Version None)
Quarter: 2011Q4

REPORT INFORMATION
  Report Type: 
  Country: None (occurrence: None)
  Receive Date: 20111222
  Receipt Date: 20111215
  Transmission Date: 20120403
  Serious: Yes (Death, Other)
  Sender: FDA-Public Use
  Company Number: FI-PFIZER INC-2011073596

PATIENT
  Age: 65 Year
  Sex: Female

DRUGS (1)
  1. REVATIO [Suspect]
     Indication: PULMONARY HYPERTENSION
     Dosage: 0.8 MG/ML
     Route: 042
     Dates: start: 20110301, end: 20110305

REACTIONS (5)
  - PULMONARY ARTERIAL PRESSURE INCREASED [None]
  - RENAL IMPAIRMENT [None]
  - DEATH [None]
  - HYPOTENSION [None]
  - SOMNOLENCE [None]
